FAERS Safety Report 6409472-4 (Version None)
Quarter: 2009Q4

REPORT INFORMATION
  Report Type: 
  Country: None (occurrence: None)
  Receive Date: 20091016
  Receipt Date: 20091008
  Transmission Date: 20100525
  Serious: Yes (Other)
  Sender: FDA-Public Use
  Company Number: 1000009365

PATIENT
  Age: 51 Year
  Sex: Male
  Weight: 79.3795 kg

DRUGS (3)
  1. LEXAPRO [Suspect]
     Indication: POST-TRAUMATIC STRESS DISORDER
     Dosage: 20 MG (20 MG, 1 IN 1 D), ORAL
     Route: 048
     Dates: start: 20081001
  2. RAMIPRIL [Concomitant]
  3. UROXATRAL [Concomitant]

REACTIONS (4)
  - INFLAMMATION [None]
  - MUCOUS MEMBRANE DISORDER [None]
  - NASAL POLYPS [None]
  - SINUS DISORDER [None]
